FAERS Safety Report 25227111 (Version 1)
Quarter: 2025Q2

REPORT INFORMATION
  Report Type: Spontaneous
  Country: DE (occurrence: DE)
  Receive Date: 20250422
  Receipt Date: 20250422
  Transmission Date: 20250717
  Serious: Yes (Other)
  Sender: TEVA
  Company Number: None

PATIENT
  Age: 28 Year
  Sex: Female
  Weight: 63 kg

DRUGS (2)
  1. BISOPROLOL [Suspect]
     Active Substance: BISOPROLOL
     Indication: Tachycardia
     Route: 065
     Dates: start: 202503
  2. BISOPROLOL [Suspect]
     Active Substance: BISOPROLOL
     Indication: Tachycardia
     Route: 048
     Dates: start: 20250201, end: 20250321

REACTIONS (5)
  - Suicidal ideation [Recovered/Resolved]
  - Depressed mood [Recovered/Resolved]
  - Negative thoughts [Recovered/Resolved]
  - Anxiety [Recovered/Resolved]
  - Violence-related symptom [Recovered/Resolved]

NARRATIVE: CASE EVENT DATE: 20250325
